FAERS Safety Report 6842475-4 (Version None)
Quarter: 2010Q3

REPORT INFORMATION
  Report Type: 
  Country: None (occurrence: None)
  Receive Date: 20100714
  Receipt Date: 20070731
  Transmission Date: 20110219
  Serious: No
  Sender: FDA-Public Use
  Company Number: US-PFIZER INC-2007065155

PATIENT
  Sex: Male
  Weight: 145.2 kg

DRUGS (4)
  1. CHANTIX [Suspect]
     Indication: SMOKING CESSATION THERAPY
     Route: 048
     Dates: start: 20070701, end: 20070701
  2. LAMICTAL [Concomitant]
     Indication: DEPRESSION
     Route: 048
  3. FOLIC ACID [Concomitant]
     Route: 048
  4. PREVACID [Concomitant]
     Indication: GASTRIC DISORDER
     Route: 048

REACTIONS (2)
  - HEADACHE [None]
  - NAUSEA [None]
